FAERS Safety Report 6250189-7 (Version None)
Quarter: 2009Q2

REPORT INFORMATION
  Report Type: 
  Country: None (occurrence: None)
  Receive Date: 20090626
  Receipt Date: 20090620
  Transmission Date: 20091009
  Serious: Yes (Other)
  Sender: FDA-Public Use
  Company Number: CHPA2009US13809

PATIENT
  Age: 90 Year
  Sex: Female

DRUGS (1)
  1. GAS-X EXTRA STR CHEWABLE TABLETS UNKNOWN (NCH)(SIMETHICONE) CHEWABLE T [Suspect]
     Indication: FLATULENCE
     Dosage: 625MG-750MG PER DAY, ORAL
     Route: 048
     Dates: start: 20040601

REACTIONS (8)
  - BALANCE DISORDER [None]
  - CEREBROVASCULAR ACCIDENT [None]
  - DEMENTIA [None]
  - DIARRHOEA [None]
  - OVERDOSE [None]
  - TRANSIENT ISCHAEMIC ATTACK [None]
  - UPPER LIMB FRACTURE [None]
  - WALKING AID USER [None]
